FAERS Safety Report 9435211 (Version 2)
Quarter: 2014Q2

REPORT INFORMATION
  Report Type: Spontaneous
  Country: CA (occurrence: CA)
  Receive Date: 20130801
  Receipt Date: 20140411
  Transmission Date: 20141212
  Serious: Yes (Other)
  Sender: FDA-Public Use
  Company Number: CA-009507513-1306CAN014443

PATIENT
  Age: 54 Year
  Sex: Male

DRUGS (7)
  1. VICTRELIS [Suspect]
     Dosage: UNK
     Route: 065
  2. VICTRELIS [Suspect]
     Dosage: UNK UNK
     Route: 065
  3. PEGASYS [Suspect]
     Dosage: 180 MICROGRAM, UNK
     Route: 065
     Dates: start: 20130416, end: 2013
  4. PEGASYS [Suspect]
     Dosage: 180 MICROGRAM, UNK
     Route: 065
  5. RIBAVIRIN [Suspect]
     Dosage: 1200 MG, QD
     Route: 065
     Dates: start: 20130416, end: 2013
  6. RIBAVIRIN [Suspect]
     Dosage: 1200 UNK, UNK
     Route: 065
  7. APO-NADOL [Concomitant]
     Route: 065

REACTIONS (11)
  - Blood test abnormal [Unknown]
  - Blood test abnormal [Unknown]
  - Eye pain [Unknown]
  - Oral pain [Unknown]
  - Oropharyngeal pain [Unknown]
  - Pain of skin [Unknown]
  - Pharyngeal disorder [Unknown]
  - Rhinitis [Unknown]
  - Oropharyngeal pain [Unknown]
  - Infection [Unknown]
  - Acne [Unknown]
